FAERS Safety Report 5896280-6 (Version None)
Quarter: 2008Q3

REPORT INFORMATION
  Report Type: 
  Country: None (occurrence: None)
  Receive Date: 20080924
  Receipt Date: 20070802
  Transmission Date: 20090109
  Serious: Yes (Other)
  Sender: FDA-Public Use
  Company Number: US-ASTRAZENECA-2007UW18682

PATIENT
  Age: 39 Year
  Sex: Female
  Weight: 80.7 kg

DRUGS (2)
  1. SEROQUEL [Suspect]
     Indication: BIPOLAR DISORDER
     Route: 048
     Dates: start: 19990101, end: 20040101
  2. SEROQUEL [Suspect]
     Route: 048
     Dates: start: 20020810

REACTIONS (1)
  - PANCREATITIS [None]
